FAERS Safety Report 5579436-1 (Version None)
Quarter: 2007Q4

REPORT INFORMATION
  Report Type: 
  Country: None (occurrence: None)
  Receive Date: 20071130
  Receipt Date: 20070628
  Transmission Date: 20080405
  Serious: No
  Sender: FDA-Public Use
  Company Number: US200707001418

PATIENT
  Age: 53 Year
  Sex: Male
  Weight: 88.4 kg

DRUGS (6)
  1. BYETTA [Suspect]
     Indication: TYPE 2 DIABETES MELLITUS
     Dosage: 5 UG, 2/D, SUBCUTANEOUS ; 10 UG, 2/D, SUBCUTANEOUS
     Route: 058
     Dates: start: 20070401, end: 20070531
  2. BYETTA [Suspect]
     Indication: TYPE 2 DIABETES MELLITUS
     Dosage: 5 UG, 2/D, SUBCUTANEOUS ; 10 UG, 2/D, SUBCUTANEOUS
     Route: 058
     Dates: start: 20070601
  3. CARDURA [Concomitant]
  4. COZAAR [Concomitant]
  5. PREVACID [Concomitant]
  6. MULTIVITAMIN [Concomitant]

REACTIONS (4)
  - CHANGE OF BOWEL HABIT [None]
  - DECREASED APPETITE [None]
  - STOMACH DISCOMFORT [None]
  - WEIGHT DECREASED [None]
